FAERS Safety Report 16860047 (Version 3)
Quarter: 2019Q4

REPORT INFORMATION
  Report Type: Spontaneous
  Country: US (occurrence: US)
  Receive Date: 20190927
  Receipt Date: 20191125
  Transmission Date: 20200122
  Serious: No
  Sender: FDA-Public Use
  Company Number: PHEH2019US039692

PATIENT
  Sex: Male

DRUGS (1)
  1. CIPRODEX [Suspect]
     Active Substance: CIPROFLOXACIN HYDROCHLORIDE\DEXAMETHASONE
     Indication: EAR INFECTION
     Dosage: UNK
     Route: 065
     Dates: start: 20190918

REACTIONS (4)
  - Pain in jaw [Unknown]
  - Burning sensation [Unknown]
  - Ear discomfort [Unknown]
  - Nausea [Unknown]
